FAERS Safety Report 6923700-8 (Version None)
Quarter: 2010Q3

REPORT INFORMATION
  Report Type: 
  Country: None (occurrence: None)
  Receive Date: 20100813
  Receipt Date: 20100806
  Transmission Date: 20110219
  Serious: Yes (Other)
  Sender: FDA-Public Use
  Company Number: B0669705A

PATIENT
  Age: 32 Year
  Sex: Male

DRUGS (3)
  1. KEPPRA [Suspect]
     Indication: EPILEPSY
     Dosage: 1000MG TWICE PER DAY
     Route: 065
     Dates: start: 20060101
  2. LAMICTAL [Suspect]
     Indication: PRODUCT USED FOR UNKNOWN INDICATION
     Dosage: 400MG TWICE PER DAY
     Route: 065
     Dates: start: 20040101
  3. EPILAN [Concomitant]
     Dosage: 100MG FOUR TIMES PER DAY
     Dates: start: 20000101, end: 20040101

REACTIONS (1)
  - OSTEONECROSIS [None]
